FAERS Safety Report 5685005-5 (Version None)
Quarter: 2008Q1

REPORT INFORMATION
  Report Type: 
  Country: None (occurrence: None)
  Receive Date: 20080328
  Receipt Date: 19970430
  Transmission Date: 20080703
  Serious: Yes (Death, Other)
  Sender: FDA-Public Use
  Company Number: IT-ROCHE-80808

PATIENT
  Age: 75 Year
  Sex: Male

DRUGS (2)
  1. TICLID [Suspect]
     Indication: ANGIOPLASTY
     Route: 048
     Dates: start: 19970124, end: 19970214
  2. ACETYLSALICYLIC ACID SRT [Concomitant]
     Route: 048
     Dates: start: 19970124, end: 19970214

REACTIONS (2)
  - DEATH [None]
  - THROMBOTIC THROMBOCYTOPENIC PURPURA [None]
